FAERS Safety Report 14265768 (Version 1)
Quarter: 2017Q4

REPORT INFORMATION
  Report Type: Spontaneous
  Country: US (occurrence: US)
  Receive Date: 20171208
  Receipt Date: 20171208
  Transmission Date: 20180321
  Serious: Yes (Hospitalization, Other)
  Sender: FDA-Public Use
  Company Number: US-BEH-2017085783

PATIENT
  Age: 51 Year
  Sex: Male
  Weight: 101.13 kg

DRUGS (15)
  1. NOVOLOG [Concomitant]
     Active Substance: INSULIN ASPART
  2. HIZENTRA [Suspect]
     Active Substance: HUMAN IMMUNOGLOBULIN G
     Dosage: UNK
     Route: 058
  3. PREVACID [Concomitant]
     Active Substance: LANSOPRAZOLE
  4. CARVEDILOL. [Concomitant]
     Active Substance: CARVEDILOL
  5. KETOROLAC [Concomitant]
     Active Substance: KETOROLAC\KETOROLAC TROMETHAMINE
  6. EPINEPHRINE. [Concomitant]
     Active Substance: EPINEPHRINE
  7. LANTUS [Concomitant]
     Active Substance: INSULIN GLARGINE
  8. ATORVASTATIN [Concomitant]
     Active Substance: ATORVASTATIN
  9. GEMFIBROZIL. [Concomitant]
     Active Substance: GEMFIBROZIL
  10. DIPHENHYDRAMINE. [Concomitant]
     Active Substance: DIPHENHYDRAMINE
  11. HIZENTRA [Suspect]
     Active Substance: HUMAN IMMUNOGLOBULIN G
     Indication: IMMUNODEFICIENCY COMMON VARIABLE
     Dosage: 21 G, EVERY WEEK
     Route: 058
     Dates: start: 20160830
  12. ACETAMINOPHEN. [Concomitant]
     Active Substance: ACETAMINOPHEN
  13. TIMOLOL MALEATE. [Concomitant]
     Active Substance: TIMOLOL MALEATE
  14. LMX                                /00033401/ [Concomitant]
  15. AMLODIPINE [Concomitant]
     Active Substance: AMLODIPINE BESYLATE

REACTIONS (3)
  - Pneumonia [Unknown]
  - Fluid overload [Unknown]
  - Pulmonary oedema [Unknown]

NARRATIVE: CASE EVENT DATE: 20171126
